FAERS Safety Report 5314045-0 (Version None)
Quarter: 2007Q2

REPORT INFORMATION
  Report Type: 
  Country: None (occurrence: None)
  Receive Date: 20070501
  Receipt Date: 20070420
  Transmission Date: 20071010
  Serious: Yes (Hospitalization)
  Sender: FDA-Public Use
  Company Number: FR-ROCHE-494331

PATIENT
  Age: 9 Year
  Sex: Male
  Weight: 33 kg

DRUGS (2)
  1. CELLCEPT [Suspect]
     Indication: DRUG USE FOR UNKNOWN INDICATION
     Route: 048
     Dates: start: 20060521, end: 20061015
  2. CORTANCYL [Concomitant]
     Dosage: DRUG NAME: CORTANCYL 20 MG
     Route: 048
     Dates: start: 20060521

REACTIONS (1)
  - HYPOGAMMAGLOBULINAEMIA [None]
